FAERS Safety Report 11595561 (Version 1)
Quarter: 2015Q4

REPORT INFORMATION
  Report Type: Spontaneous
  Country: US (occurrence: US)
  Receive Date: 20151006
  Receipt Date: 20151006
  Transmission Date: 20160304
  Serious: Yes (Hospitalization)
  Sender: FDA-Public Use
  Company Number: US-ROCHE-ITM201505IM016675

PATIENT
  Age: 78 Year
  Sex: Male
  Weight: 83.54 kg

DRUGS (2)
  1. ESBRIET [Suspect]
     Active Substance: PIRFENIDONE
     Dosage: 2403 MG 3 CAPS 2 CAPS AM, 2 CAPS NOON, 3 CAPS EVEN
     Route: 048
     Dates: start: 20150218
  2. ESBRIET [Suspect]
     Active Substance: PIRFENIDONE
     Indication: IDIOPATHIC PULMONARY FIBROSIS
     Route: 048
     Dates: start: 20150217

REACTIONS (4)
  - Nausea [Unknown]
  - Decreased appetite [Unknown]
  - Aortic aneurysm [Unknown]
  - Gastrointestinal disorder [Unknown]

NARRATIVE: CASE EVENT DATE: 201504
